FAERS Safety Report 19745458 (Version 3)
Quarter: 2024Q1

REPORT INFORMATION
  Report Type: Spontaneous
  Country: US (occurrence: US)
  Receive Date: 20210825
  Receipt Date: 20240105
  Transmission Date: 20240410
  Serious: Yes (Other)
  Sender: FDA-Public Use
  Company Number: US-PFIZER INC-202101064052

PATIENT
  Age: 36 Year
  Sex: Female
  Weight: 53.061 kg

DRUGS (8)
  1. XELJANZ [Suspect]
     Active Substance: TOFACITINIB CITRATE
     Indication: Hypogammaglobulinaemia
     Dosage: 5 MG, 2X/DAY
     Route: 048
     Dates: start: 2020
  2. CLARITIN [Concomitant]
     Active Substance: LORATADINE
     Dosage: UNK
  3. PHENERGAN [Concomitant]
     Active Substance: PROMETHAZINE HYDROCHLORIDE
     Dosage: UNK
  4. ZOFRAN [Concomitant]
     Active Substance: ONDANSETRON HYDROCHLORIDE
     Dosage: UNK
  5. MAGNESIUM [Concomitant]
     Active Substance: MAGNESIUM
     Dosage: UNK
  6. CLONAZEPAM [Concomitant]
     Active Substance: CLONAZEPAM
     Dosage: UNK
  7. CLINDAMYCIN [Concomitant]
     Active Substance: CLINDAMYCIN
     Dosage: UNK
  8. VYVANSE [Concomitant]
     Active Substance: LISDEXAMFETAMINE DIMESYLATE
     Dosage: UNK

REACTIONS (8)
  - Immunodeficiency [Unknown]
  - Impaired gastric emptying [Unknown]
  - Off label use [Unknown]
  - Mastocytosis [Unknown]
  - Condition aggravated [Recovering/Resolving]
  - Weight increased [Unknown]
  - Drug effective for unapproved indication [Unknown]
  - Illness [Unknown]

NARRATIVE: CASE EVENT DATE: 20200101
